FAERS Safety Report 25346591 (Version 1)
Quarter: 2025Q2

REPORT INFORMATION
  Report Type: Spontaneous
  Country: US (occurrence: US)
  Receive Date: 20250522
  Receipt Date: 20250522
  Transmission Date: 20250716
  Serious: Yes (Other)
  Sender: AUROBINDO
  Company Number: US-MLMSERVICE-20250428-PI494190-00077-1

PATIENT
  Age: 71 Year
  Sex: Female

DRUGS (6)
  1. CAPECITABINE [Suspect]
     Active Substance: CAPECITABINE
     Indication: Metastases to central nervous system
     Route: 048
  2. CAPECITABINE [Suspect]
     Active Substance: CAPECITABINE
     Indication: Breast cancer metastatic
  3. CAPECITABINE [Suspect]
     Active Substance: CAPECITABINE
     Indication: Triple negative breast cancer
  4. BUDESONIDE [Concomitant]
     Active Substance: BUDESONIDE
     Indication: Metastases to central nervous system
     Route: 065
  5. BUDESONIDE [Concomitant]
     Active Substance: BUDESONIDE
     Indication: Breast cancer metastatic
  6. BUDESONIDE [Concomitant]
     Active Substance: BUDESONIDE
     Indication: Triple negative breast cancer

REACTIONS (3)
  - Colitis microscopic [Unknown]
  - Skin hyperpigmentation [Unknown]
  - Dizziness [Unknown]
